FAERS Safety Report 20764247 (Version 1)
Quarter: 2022Q2

REPORT INFORMATION
  Report Type: Spontaneous
  Country: PT (occurrence: PT)
  Receive Date: 20220428
  Receipt Date: 20220428
  Transmission Date: 20220721
  Serious: Yes (Other)
  Sender: FDA-Public Use
  Company Number: None

PATIENT
  Age: 50 Year
  Sex: Female
  Weight: 71 kg

DRUGS (4)
  1. SERTRALINE HYDROCHLORIDE [Suspect]
     Active Substance: SERTRALINE HYDROCHLORIDE
     Indication: Depression
     Dosage: SERTRALINE: 1/2 IN THE FIRST WEEK AND 1 AT THE END OF THE 2ND WEEK INCREASED TO 1 WHOLE.?ROUTE OF AD
     Route: 048
     Dates: start: 20220304, end: 20220307
  2. SERTRALINE HYDROCHLORIDE [Suspect]
     Active Substance: SERTRALINE HYDROCHLORIDE
     Route: 048
     Dates: start: 20220224, end: 20220303
  3. AZITHROMYCIN [Suspect]
     Active Substance: AZITHROMYCIN
     Indication: Rhinitis
     Dosage: 1 DOSAGE FORMS DAILY; 1X A DAY FOR 3 DAYS, ROUTE OF ADMINISTRATION: ORAL, DURATION : 3 DAYS
     Route: 048
     Dates: start: 20220226, end: 20220301
  4. QUETIAPINE [Concomitant]
     Active Substance: QUETIAPINE
     Indication: Product used for unknown indication
     Dosage: 25 MILLIGRAM DAILY; 1 TABLET A DAY, AT BEDTIME, ROUTE OF ADMINISTRATION: ORAL., STRENGTH : 25 MG
     Route: 048
     Dates: start: 20220223

REACTIONS (2)
  - Oral disorder [Unknown]
  - Eye injury [Unknown]

NARRATIVE: CASE EVENT DATE: 20220302
